FAERS Safety Report 5222443-9 (Version None)
Quarter: 2007Q1

REPORT INFORMATION
  Report Type: 
  Country: None (occurrence: None)
  Receive Date: 20070129
  Receipt Date: 20060612
  Transmission Date: 20070707
  Serious: Yes (Hospitalization)
  Sender: FDA-Public Use
  Company Number: US-BRISTOL-MYERS SQUIBB COMPANY-13328760

PATIENT
  Sex: Female

DRUGS (3)
  1. CISPLATIN [Suspect]
     Indication: MESOTHELIOMA MALIGNANT RECURRENT
     Route: 042
     Dates: start: 20060324, end: 20060324
  2. GEMZAR [Suspect]
     Indication: MESOTHELIOMA MALIGNANT RECURRENT
     Route: 042
     Dates: start: 20060324, end: 20060324
  3. NAVELBINE [Suspect]
     Indication: MESOTHELIOMA MALIGNANT RECURRENT
     Route: 042
     Dates: start: 20060324, end: 20060324

REACTIONS (1)
  - HYPERSENSITIVITY [None]
